FAERS Safety Report 5831409-7 (Version None)
Quarter: 2008Q3

REPORT INFORMATION
  Report Type: 
  Country: None (occurrence: None)
  Receive Date: 20080801
  Receipt Date: 20080721
  Transmission Date: 20090109
  Serious: Yes (Other)
  Sender: FDA-Public Use
  Company Number: US-PFIZER INC-2008051965

PATIENT
  Sex: Female
  Weight: 65.8 kg

DRUGS (10)
  1. CHANTIX [Suspect]
     Indication: SMOKING CESSATION THERAPY
     Route: 048
  2. SOTALOL HCL [Concomitant]
  3. PRIMIDONE [Concomitant]
  4. LEVOTHROID [Concomitant]
  5. ZOCOR [Concomitant]
  6. WARFARIN SODIUM [Concomitant]
  7. CALMAG D [Concomitant]
  8. GLUCOSAMINE [Concomitant]
  9. LORAZEPAM [Concomitant]
  10. FLORINEF [Concomitant]

REACTIONS (6)
  - BREATH ODOUR [None]
  - DYSGEUSIA [None]
  - EYE PAIN [None]
  - LIGAMENT INJURY [None]
  - NAUSEA [None]
  - PAIN [None]
